FAERS Safety Report 8371679-7 (Version None)
Quarter: 2012Q2

REPORT INFORMATION
  Report Type: 
  Country: None (occurrence: None)
  Receive Date: 20120518
  Receipt Date: 20120515
  Transmission Date: 20120825
  Serious: Yes (Other)
  Sender: FDA-Public Use
  Company Number: US-PFIZER INC-2012117974

PATIENT
  Sex: Female
  Weight: 10.431 kg

DRUGS (1)
  1. PEDIATRIC ADVIL [Suspect]
     Indication: PYREXIA
     Dosage: 1.875 ML, AS NEEDED
     Dates: start: 20120513, end: 20120514

REACTIONS (8)
  - DERMATITIS DIAPER [None]
  - URTICARIA [None]
  - OEDEMA PERIPHERAL [None]
  - EYE SWELLING [None]
  - EYE DISORDER [None]
  - OCULAR HYPERAEMIA [None]
  - HYPERSENSITIVITY [None]
  - LIP SWELLING [None]
